FAERS Safety Report 22020868 (Version 1)
Quarter: 2023Q1

REPORT INFORMATION
  Report Type: Spontaneous
  Country: FR (occurrence: FR)
  Receive Date: 20230222
  Receipt Date: 20230222
  Transmission Date: 20230418
  Serious: Yes (Death)
  Sender: FDA-Public Use
  Company Number: None

PATIENT
  Age: 67 Year
  Sex: Male
  Weight: 66.5 kg

DRUGS (3)
  1. GEMCITABINE HYDROCHLORIDE [Suspect]
     Active Substance: GEMCITABINE HYDROCHLORIDE
     Indication: Tonsil cancer
     Dosage: UNK UNK, UNKNOWN
     Route: 042
     Dates: start: 20230123, end: 20230127
  2. VINORELBINE TARTRATE [Suspect]
     Active Substance: VINORELBINE TARTRATE
     Indication: Tonsil cancer
     Dosage: UNK UNK, UNKNOWN
     Route: 042
     Dates: start: 20230123, end: 20230127
  3. DOCETAXEL [Suspect]
     Active Substance: DOCETAXEL
     Indication: Tonsil cancer
     Dosage: UNK UNK, UNKNOWN
     Route: 042
     Dates: start: 20230123, end: 20230127

REACTIONS (4)
  - Circulatory collapse [Fatal]
  - Thrombocytopenia [Fatal]
  - Leukopenia [Fatal]
  - Off label use [Unknown]

NARRATIVE: CASE EVENT DATE: 20230130
